FAERS Safety Report 6522216-0 (Version None)
Quarter: 2009Q4

REPORT INFORMATION
  Report Type: 
  Country: None (occurrence: None)
  Receive Date: 20091222
  Receipt Date: 20091209
  Transmission Date: 20100525
  Serious: Yes (Hospitalization, Other)
  Sender: FDA-Public Use
  Company Number: 2009SP003270

PATIENT
  Sex: Female
  Weight: 72.1 kg

DRUGS (20)
  1. XOPENEX [Suspect]
     Indication: CHRONIC OBSTRUCTIVE PULMONARY DISEASE
     Dosage: SEE IMAGE
     Route: 055
     Dates: start: 20010101, end: 20070101
  2. XOPENEX [Suspect]
     Indication: CHRONIC OBSTRUCTIVE PULMONARY DISEASE
     Dosage: SEE IMAGE
     Route: 055
     Dates: start: 20070101, end: 20091001
  3. XOPENEX [Suspect]
     Indication: CHRONIC OBSTRUCTIVE PULMONARY DISEASE
     Dosage: SEE IMAGE
     Route: 055
     Dates: start: 20091001, end: 20091201
  4. XOPENEX [Suspect]
     Indication: CHRONIC OBSTRUCTIVE PULMONARY DISEASE
     Dosage: SEE IMAGE
     Route: 055
     Dates: start: 20091201, end: 20091207
  5. XOPENEX [Suspect]
     Indication: CHRONIC OBSTRUCTIVE PULMONARY DISEASE
     Dosage: SEE IMAGE
     Route: 055
     Dates: start: 20091201
  6. XOPENEX HFA [Suspect]
     Indication: CHRONIC OBSTRUCTIVE PULMONARY DISEASE
     Dosage: 90 UG;PRN;INHALATION
     Route: 055
     Dates: start: 20090301
  7. CALCIUM (600 MG) [Suspect]
     Indication: OSTEOPOROSIS
     Dosage: 600 MG; TID
     Dates: start: 20000101, end: 20090501
  8. IPRATROPIUM [Suspect]
     Indication: CHRONIC OBSTRUCTIVE PULMONARY DISEASE
     Dosage: QID;INHALATION
     Route: 055
     Dates: start: 20010101
  9. COMBIVENT [Concomitant]
  10. BENICAR [Concomitant]
  11. FLOVENT [Concomitant]
  12. ALPRAZOLAM [Concomitant]
  13. EVISTA [Concomitant]
  14. CARDIZEM CD [Concomitant]
  15. LIPITOR [Concomitant]
  16. ASPIRIN [Concomitant]
  17. FLUTICASONE [Concomitant]
  18. SPIRIVA [Concomitant]
  19. OTHER OPHTHALMOLOGICALS [Concomitant]
  20. ALBUTEROL [Concomitant]

REACTIONS (18)
  - ALTERED STATE OF CONSCIOUSNESS [None]
  - ARTHRALGIA [None]
  - BLOOD CALCIUM INCREASED [None]
  - BLOOD POTASSIUM INCREASED [None]
  - BLOOD PRESSURE INCREASED [None]
  - CHOLELITHIASIS [None]
  - CHRONIC OBSTRUCTIVE PULMONARY DISEASE [None]
  - DECREASED ACTIVITY [None]
  - DRUG EFFECT DECREASED [None]
  - DYSPNOEA [None]
  - EXPIRED DRUG ADMINISTERED [None]
  - FACE INJURY [None]
  - FALL [None]
  - HEART RATE INCREASED [None]
  - LOSS OF CONSCIOUSNESS [None]
  - PAIN IN EXTREMITY [None]
  - PALPITATIONS [None]
  - TEMPERATURE INTOLERANCE [None]
